FAERS Safety Report 9703022 (Version 2)
Quarter: 2013Q4

REPORT INFORMATION
  Report Type: Spontaneous
  Country: US (occurrence: US)
  Receive Date: 20131122
  Receipt Date: 20131128
  Transmission Date: 20140711
  Serious: No
  Sender: FDA-Public Use
  Company Number: US-009507513-1311USA008720

PATIENT
  Sex: 0
  Weight: 112.2 kg

DRUGS (1)
  1. NEXPLANON [Suspect]
     Dosage: 1 ROD, UNK
     Route: 059
     Dates: start: 20130524

REACTIONS (4)
  - Device deployment issue [Unknown]
  - Device kink [Unknown]
  - Device breakage [Unknown]
  - No adverse event [Unknown]
